FAERS Safety Report 7248983-9 (Version None)
Quarter: 2011Q1

REPORT INFORMATION
  Report Type: 
  Country: None (occurrence: None)
  Receive Date: 20110128
  Receipt Date: 20101011
  Transmission Date: 20110831
  Serious: Yes (Hospitalization, Other)
  Sender: FDA-Public Use
  Company Number: US-BAYER-201020671NA

PATIENT
  Sex: Female
  Weight: 73 kg

DRUGS (8)
  1. YAZ [Suspect]
     Indication: PRODUCT USED FOR UNKNOWN INDICATION
     Dosage: UNK UNK, UNK
     Route: 048
  2. PERCOCET [Concomitant]
  3. YASMIN [Suspect]
     Indication: CONTRACEPTION
     Dosage: UNK UNK, UNK
     Route: 048
     Dates: start: 20070821, end: 20071001
  4. LEXAPRO [Concomitant]
     Indication: DEPRESSION
     Dosage: UNK
     Dates: start: 20070101, end: 20080101
  5. COLACE [Concomitant]
  6. ATIVAN [Concomitant]
     Indication: ANXIETY
     Dosage: UNK
     Dates: start: 20070101, end: 20080101
  7. TRAZODONE [Concomitant]
     Dosage: UNK
     Dates: start: 20070701
  8. NITROL [Concomitant]

REACTIONS (6)
  - PARESIS [None]
  - BRAIN STEM INFARCTION [None]
  - HYPOAESTHESIA [None]
  - FACIAL PARESIS [None]
  - DYSARTHRIA [None]
  - PARAESTHESIA [None]
